FAERS Safety Report 10254143 (Version 1)
Quarter: 2014Q2

REPORT INFORMATION
  Report Type: Spontaneous
  Country: US (occurrence: US)
  Receive Date: 20140624
  Receipt Date: 20140624
  Transmission Date: 20141212
  Serious: No
  Sender: FDA-Public Use
  Company Number: US-ASTRAZENECA-2014SE44362

PATIENT
  Sex: Male

DRUGS (2)
  1. CRESTOR [Suspect]
     Indication: BLOOD CHOLESTEROL INCREASED
     Route: 048
     Dates: start: 201402, end: 2014
  2. CRESTOR [Suspect]
     Indication: BLOOD CHOLESTEROL INCREASED
     Route: 048

REACTIONS (4)
  - Soft tissue mass [Unknown]
  - Pain [Recovered/Resolved]
  - Swelling [Recovered/Resolved]
  - Muscle spasms [Recovered/Resolved]
